FAERS Safety Report 8120440-7 (Version None)
Quarter: 2012Q1

REPORT INFORMATION
  Report Type: 
  Country: None (occurrence: None)
  Receive Date: 20120203
  Receipt Date: 20120123
  Transmission Date: 20120608
  Serious: Yes (Hospitalization, Other)
  Sender: FDA-Public Use
  Company Number: US-2011-10755

PATIENT
  Age: 42 Year
  Sex: Male

DRUGS (14)
  1. ZOFRAN [Concomitant]
  2. ATENOLOL [Concomitant]
  3. MELOXICAM [Concomitant]
  4. BACTRIM DS [Concomitant]
  5. ETOPOSIDE [Concomitant]
  6. CYCLOPHOSPHAMIDE [Concomitant]
  7. RANTIDINE (RANITIDINE HYDROCHLORIDE) [Concomitant]
  8. BUSULFAN [Suspect]
     Indication: LYMPHOMA
     Dosage: 76 MG MILLIGRAM(S), DAILY DOSE, INTRAVENOUS, 367 MG MILLIGRAM(S) DAILY DOSE, INTRAVENOUS
     Route: 042
     Dates: start: 20110623, end: 20110626
  9. BUSULFAN [Suspect]
     Indication: LYMPHOMA
     Dosage: 76 MG MILLIGRAM(S), DAILY DOSE, INTRAVENOUS, 367 MG MILLIGRAM(S) DAILY DOSE, INTRAVENOUS
     Route: 042
     Dates: start: 20110621, end: 20110621
  10. ACYCLOVIR [Concomitant]
  11. FLUCONAZOLE [Concomitant]
  12. FUROSEMIDE [Concomitant]
  13. ONDANSETRON (ONDANESTRON HYDROCHLORIDE) [Concomitant]
  14. VICODIN [Concomitant]

REACTIONS (2)
  - PNEUMONITIS [None]
  - INFECTION [None]
